FAERS Safety Report 14729984 (Version 3)
Quarter: 2020Q2

REPORT INFORMATION
  Report Type: Spontaneous
  Country: IT (occurrence: IT)
  Receive Date: 20180406
  Receipt Date: 20200615
  Transmission Date: 20200713
  Serious: Yes (Other)
  Sender: FDA-Public Use
  Company Number: IT-ALEXION PHARMACEUTICALS INC.-A201803961

PATIENT
  Age: 34 Year
  Sex: Male

DRUGS (6)
  1. SOLIRIS [Suspect]
     Active Substance: ECULIZUMAB
     Indication: OFF LABEL USE
     Dosage: 1200 MG, UNK
     Route: 042
  2. METHYLPREDNISOLONE. [Suspect]
     Active Substance: METHYLPREDNISOLONE
     Indication: THROMBOTIC THROMBOCYTOPENIC PURPURA
     Dosage: UNK
     Route: 042
  3. SOLIRIS [Suspect]
     Active Substance: ECULIZUMAB
     Dosage: 1200 MG, Q2W
     Route: 042
  4. SOLIRIS [Suspect]
     Active Substance: ECULIZUMAB
     Indication: THROMBOTIC THROMBOCYTOPENIC PURPURA
     Dosage: 900 MG, QW FOR 4 DOSES
     Route: 042
  5. VINCRISTINE [Suspect]
     Active Substance: VINCRISTINE
     Indication: THROMBOTIC THROMBOCYTOPENIC PURPURA
     Dosage: UNK, DAY+1,+5,+9,+13
     Route: 065
  6. RITUXIMAB. [Suspect]
     Active Substance: RITUXIMAB
     Indication: THROMBOTIC THROMBOCYTOPENIC PURPURA
     Dosage: 375 MILLIGRAM(S)/SQ. METER, ON DAY+1,+4,+8 AND +11
     Route: 042

REACTIONS (4)
  - Cytomegalovirus infection reactivation [Recovered/Resolved]
  - Off label use [Unknown]
  - Staphylococcal sepsis [Recovered/Resolved]
  - Intentional product use issue [Unknown]
